FAERS Safety Report 8384213-2 (Version None)
Quarter: 2012Q2

REPORT INFORMATION
  Report Type: 
  Country: None (occurrence: None)
  Receive Date: 20120524
  Receipt Date: 20120508
  Transmission Date: 20120825
  Serious: Yes (Other)
  Sender: FDA-Public Use
  Company Number: AU-BMSGILMSD-2012-0055433

PATIENT
  Age: 37 Year
  Sex: Male

DRUGS (1)
  1. EFAVIRENZ/EMTRICITABINE/TENOFOVIR DF [Suspect]
     Indication: HIV INFECTION

REACTIONS (1)
  - NERVOUS SYSTEM DISORDER [None]
